FAERS Safety Report 14416923 (Version 1)
Quarter: 2018Q1

REPORT INFORMATION
  Report Type: Spontaneous
  Country: US (occurrence: US)
  Receive Date: 20180122
  Receipt Date: 20180122
  Transmission Date: 20180509
  Serious: No
  Sender: FDA-Public Use
  Company Number: US-PFIZER INC-2018023174

PATIENT
  Age: 72 Year
  Sex: Female

DRUGS (1)
  1. ALTACE [Suspect]
     Active Substance: RAMIPRIL
     Dosage: UNK

REACTIONS (5)
  - Dyspnoea [Unknown]
  - Chest pain [Unknown]
  - Drug hypersensitivity [Unknown]
  - Groin pain [Unknown]
  - Hyperhidrosis [Unknown]
